FAERS Safety Report 6636452-6 (Version None)
Quarter: 2010Q1

REPORT INFORMATION
  Report Type: 
  Country: None (occurrence: None)
  Receive Date: 20100316
  Receipt Date: 20100304
  Transmission Date: 20100710
  Serious: Yes (Other)
  Sender: FDA-Public Use
  Company Number: JP-PFIZER INC-2010029439

PATIENT
  Sex: Male

DRUGS (1)
  1. CHAMPIX [Suspect]
     Dosage: 0.5 MG, 1X/DAY
     Route: 048

REACTIONS (9)
  - ABNORMAL DREAMS [None]
  - AGGRESSION [None]
  - CONSTIPATION [None]
  - DEPRESSED MOOD [None]
  - HEADACHE [None]
  - IMPAIRED WORK ABILITY [None]
  - MOOD ALTERED [None]
  - ROAD TRAFFIC ACCIDENT [None]
  - SUICIDAL IDEATION [None]
